FAERS Safety Report 24161046 (Version 1)
Quarter: 2024Q3

REPORT INFORMATION
  Report Type: Spontaneous
  Country: BR (occurrence: BR)
  Receive Date: 20240801
  Receipt Date: 20240801
  Transmission Date: 20241017
  Serious: Yes (Other)
  Sender: ROCHE
  Company Number: BR-ROCHE-10000042465

PATIENT
  Sex: Female

DRUGS (3)
  1. ATEZOLIZUMAB [Suspect]
     Active Substance: ATEZOLIZUMAB
     Indication: Lung neoplasm malignant
     Route: 065
     Dates: start: 202302
  2. CISPLATIN [Concomitant]
     Active Substance: CISPLATIN
  3. PEMETREXED [Concomitant]
     Active Substance: PEMETREXED

REACTIONS (2)
  - Cough [Unknown]
  - Lung adenocarcinoma [Unknown]

NARRATIVE: CASE EVENT DATE: 20230501
